APPROVED DRUG PRODUCT: PREGABALIN
Active Ingredient: PREGABALIN
Strength: 330MG
Dosage Form/Route: TABLET, EXTENDED RELEASE;ORAL
Application: A214496 | Product #003 | TE Code: AB
Applicant: EPIC PHARMA LLC
Approved: Jun 1, 2023 | RLD: No | RS: No | Type: RX